FAERS Safety Report 6196061-2 (Version None)
Quarter: 2009Q2

REPORT INFORMATION
  Report Type: 
  Country: None (occurrence: None)
  Receive Date: 20090520
  Receipt Date: 20090508
  Transmission Date: 20091009
  Serious: Yes (Hospitalization)
  Sender: FDA-Public Use
  Company Number: JP-PFIZER INC-2009179295

PATIENT
  Age: 69 Year

DRUGS (12)
  1. AZULFIDINE [Suspect]
     Indication: RHEUMATOID ARTHRITIS
     Dosage: 500 MG, 2X/DAY
     Dates: start: 20050101, end: 20090128
  2. BEPRICOR [Concomitant]
     Dosage: UNK
     Route: 048
     Dates: start: 20071201
  3. MEXITIL [Concomitant]
     Dosage: UNK
     Route: 048
     Dates: start: 20080701, end: 20090128
  4. ARTIST [Concomitant]
     Dosage: UNK
     Route: 048
  5. RENIVACE [Concomitant]
     Dosage: UNK
     Route: 048
  6. LASIX [Concomitant]
     Dosage: UNK
     Route: 048
  7. DIGOXIN [Concomitant]
     Dosage: UNK
     Route: 048
  8. ALDACTONE [Concomitant]
     Dosage: UNK
     Route: 048
  9. SIGMART [Concomitant]
     Dosage: UNK
     Route: 048
  10. PREDNISOLONE [Concomitant]
     Route: 048
     Dates: start: 20050101, end: 20090128
  11. SIMVASTATIN [Concomitant]
     Route: 048
  12. PAXIL [Concomitant]
     Indication: DEPRESSION
     Dosage: UNK
     Route: 048
     Dates: start: 20080815

REACTIONS (1)
  - INTERSTITIAL LUNG DISEASE [None]
